FAERS Safety Report 7023037-5 (Version None)
Quarter: 2010Q3

REPORT INFORMATION
  Report Type: 
  Country: None (occurrence: None)
  Receive Date: 20100930
  Receipt Date: 20100924
  Transmission Date: 20110219
  Serious: Yes (Death)
  Sender: FDA-Public Use
  Company Number: CO-WYE-H17780810

PATIENT
  Sex: Male

DRUGS (1)
  1. RAPAMUNE [Suspect]
     Indication: PROPHYLAXIS AGAINST TRANSPLANT REJECTION
     Dosage: 1 MG
     Route: 048
     Dates: start: 20080101

REACTIONS (3)
  - ANAEMIA [None]
  - KIDNEY TRANSPLANT REJECTION [None]
  - VIRAL INFECTION [None]
